FAERS Safety Report 10880847 (Version 1)
Quarter: 2015Q1

REPORT INFORMATION
  Report Type: Spontaneous
  Country: IN (occurrence: None)
  Receive Date: 20150225
  Receipt Date: 20150225
  Transmission Date: 20150721
  Serious: Yes (Other)
  Sender: FDA-Public Use
  Company Number: 2015SUP00018

PATIENT
  Age: 38 Year
  Sex: Female

DRUGS (1)
  1. TOPIRAMATE (TOPIRAMATE) TABLET [Suspect]
     Active Substance: TOPIRAMATE

REACTIONS (3)
  - Iridocyclitis [None]
  - Angle closure glaucoma [None]
  - Choroidal detachment [None]
